FAERS Safety Report 22630572 (Version 1)
Quarter: 2023Q2

REPORT INFORMATION
  Report Type: Report from Study
  Country: US (occurrence: None)
  Receive Date: 20230622
  Receipt Date: 20230622
  Transmission Date: 20230722
  Serious: Yes (Death)
  Sender: FDA-Public Use
  Company Number: 2023A142700

PATIENT
  Sex: Male
  Weight: 59 kg

DRUGS (5)
  1. TAGRISSO [Suspect]
     Active Substance: OSIMERTINIB
     Indication: Non-small cell lung cancer
     Route: 048
     Dates: start: 20200310
  2. TAGRISSO [Suspect]
     Active Substance: OSIMERTINIB
     Indication: Metastases to lymph nodes
     Route: 048
     Dates: start: 20200310
  3. TAGRISSO [Suspect]
     Active Substance: OSIMERTINIB
     Indication: Metastases to bone
     Route: 048
     Dates: start: 20200310
  4. TAGRISSO [Suspect]
     Active Substance: OSIMERTINIB
     Indication: Metastases to lung
     Route: 048
     Dates: start: 20200310
  5. TAGRISSO [Suspect]
     Active Substance: OSIMERTINIB
     Indication: Metastases to liver
     Route: 048
     Dates: start: 20200310

REACTIONS (1)
  - Death [Fatal]
